FAERS Safety Report 7872489-7 (Version None)
Quarter: 2011Q4

REPORT INFORMATION
  Report Type: 
  Country: None (occurrence: None)
  Receive Date: 20111030
  Receipt Date: 20110426
  Transmission Date: 20120403
  Serious: No
  Sender: FDA-Public Use
  Company Number: US-AMGEN-USASP2011021748

PATIENT
  Age: 47 Year
  Sex: Male
  Weight: 70.748 kg

DRUGS (7)
  1. VERAPAMIL [Concomitant]
     Dosage: 100 MG, UNK
  2. ACIPHEX [Concomitant]
     Dosage: 20 MG, UNK
  3. METHOTREXATE [Concomitant]
     Dosage: 2.5 MG, UNK
  4. ENBREL [Suspect]
     Indication: PRODUCT USED FOR UNKNOWN INDICATION
     Dosage: 50 MG, QWK
     Route: 058
  5. ZOFRAN [Concomitant]
     Dosage: 4 MG, UNK
  6. CRESTOR [Concomitant]
     Dosage: 20 MG, UNK
  7. ASPIRIN [Concomitant]
     Dosage: 81 MG, UNK

REACTIONS (1)
  - OESOPHAGEAL CANDIDIASIS [None]
